FAERS Safety Report 4923689-7 (Version None)
Quarter: 2006Q1

REPORT INFORMATION
  Report Type: 
  Country: None (occurrence: None)
  Receive Date: 20060227
  Receipt Date: 20051001
  Transmission Date: 20060701
  Serious: Yes (Other)
  Sender: FDA-Public Use
  Company Number: PR-MERCK-0510USA00893

PATIENT
  Age: 56 Year
  Sex: Female
  Weight: 110 kg

DRUGS (1)
  1. VIOXX [Suspect]
     Indication: PAIN
     Route: 048
     Dates: start: 20040101, end: 20041001

REACTIONS (2)
  - PRESCRIBED OVERDOSE [None]
  - RETINAL HAEMORRHAGE [None]
